FAERS Safety Report 17928416 (Version 1)
Quarter: 2020Q2

REPORT INFORMATION
  Report Type: Report from Study
  Country: None (occurrence: US)
  Receive Date: 20200622
  Receipt Date: 20200622
  Transmission Date: 20200714
  Serious: Yes (Other)
  Sender: FDA-Public Use
  Company Number: US-ABBVIE-20K-163-3452645-00

PATIENT
  Age: 82 Year
  Sex: Male

DRUGS (2)
  1. VENCLEXTA [Suspect]
     Active Substance: VENETOCLAX
     Indication: CHRONIC LYMPHOCYTIC LEUKAEMIA
     Route: 048
     Dates: start: 2016
  2. FLUOROURACIL. [Concomitant]
     Active Substance: FLUOROURACIL
     Indication: SKIN CANCER

REACTIONS (2)
  - Skin cancer [Not Recovered/Not Resolved]
  - Animal bite [Recovered/Resolved]

NARRATIVE: CASE EVENT DATE: 202006
